FAERS Safety Report 6715361-8 (Version None)
Quarter: 2010Q2

REPORT INFORMATION
  Report Type: 
  Country: None (occurrence: None)
  Receive Date: 20100507
  Receipt Date: 20100428
  Transmission Date: 20101027
  Serious: Yes (Death)
  Sender: FDA-Public Use
  Company Number: JP-BAYER-200911514BYL

PATIENT
  Age: 62 Year
  Sex: Male

DRUGS (9)
  1. NEXAVAR [Suspect]
     Indication: RENAL CELL CARCINOMA
     Dosage: UNIT DOSE: 200 MG
     Route: 048
     Dates: start: 20081121, end: 20081124
  2. NEXAVAR [Suspect]
     Dosage: UNIT DOSE: 200 MG
     Route: 048
     Dates: start: 20081125, end: 20081228
  3. NEXAVAR [Suspect]
     Dosage: UNIT DOSE: 200 MG
     Route: 048
     Dates: start: 20081229, end: 20090411
  4. NU-LOTAN [Concomitant]
     Route: 048
     Dates: start: 20081118
  5. NORVASC [Concomitant]
     Route: 048
     Dates: start: 20081118
  6. FAMOTIDINE [Concomitant]
     Route: 048
     Dates: start: 20081118
  7. DEPAKENE [Concomitant]
     Indication: METASTASES TO CENTRAL NERVOUS SYSTEM
     Route: 048
     Dates: start: 20081118
  8. TEGRETOL [Concomitant]
     Indication: METASTASES TO CENTRAL NERVOUS SYSTEM
     Route: 048
     Dates: start: 20081118
  9. ARTIST [Concomitant]
     Route: 048
     Dates: start: 20081122

REACTIONS (3)
  - HYPERTENSION [None]
  - RENAL CELL CARCINOMA [None]
  - TREMOR [None]
